FAERS Safety Report 6768662-1 (Version None)
Quarter: 2010Q2

REPORT INFORMATION
  Report Type: 
  Country: None (occurrence: None)
  Receive Date: 20100614
  Receipt Date: 20100610
  Transmission Date: 20101027
  Serious: Yes (Life-Threatening)
  Sender: FDA-Public Use
  Company Number: JP-ASTRAZENECA-2010SE17649

PATIENT
  Age: 16845 Day
  Sex: Male
  Weight: 77 kg

DRUGS (37)
  1. CRESTOR [Suspect]
     Indication: HYPERLIPIDAEMIA
     Route: 048
     Dates: start: 20091101, end: 20091217
  2. CRESTOR [Suspect]
     Route: 048
     Dates: start: 20091220, end: 20091231
  3. ASPIRIN [Suspect]
     Route: 048
     Dates: start: 20091101, end: 20091217
  4. ASPIRIN [Suspect]
     Route: 048
     Dates: start: 20091220
  5. PLAVIX [Concomitant]
     Route: 048
     Dates: start: 20091101, end: 20091217
  6. SELOKEN L TABLETS [Concomitant]
     Route: 048
     Dates: start: 20091101, end: 20091217
  7. SIGMART [Concomitant]
     Route: 048
     Dates: start: 20091101, end: 20091217
  8. SIGMART [Concomitant]
     Route: 042
     Dates: start: 20091217, end: 20091220
  9. NORVASC [Concomitant]
     Route: 048
     Dates: start: 20091101, end: 20091217
  10. OMEPRAL TABLETS [Concomitant]
     Route: 048
     Dates: start: 20091101, end: 20091217
  11. MINITRO [Concomitant]
     Dosage: 1 PIECE.
     Route: 062
     Dates: start: 20091101, end: 20091217
  12. HEPARIN AND PREPARATIONS [Concomitant]
     Route: 065
     Dates: start: 20091217, end: 20091217
  13. NITROGLYCERIN [Concomitant]
     Route: 042
     Dates: start: 20091217, end: 20091217
  14. SALIPEX [Concomitant]
     Route: 065
     Dates: start: 20091218, end: 20091218
  15. MAGNESOL [Concomitant]
     Route: 042
     Dates: start: 20091218, end: 20091219
  16. BUMINATE [Concomitant]
     Route: 041
     Dates: start: 20091218, end: 20091219
  17. SEFMAZON [Concomitant]
     Route: 042
     Dates: start: 20091218, end: 20091220
  18. GASPORT [Concomitant]
     Route: 065
     Dates: start: 20091218, end: 20091220
  19. PROPOFOL [Concomitant]
     Route: 042
     Dates: start: 20091218, end: 20091220
  20. SOSEGON [Concomitant]
     Route: 065
     Dates: start: 20091218, end: 20091220
  21. ATARAX [Concomitant]
     Route: 065
     Dates: start: 20091218, end: 20091220
  22. ELASPOL [Concomitant]
     Route: 042
     Dates: start: 20091218, end: 20091220
  23. HANP [Concomitant]
     Route: 042
     Dates: start: 20091218, end: 20091220
  24. VEEN-F [Concomitant]
     Route: 041
     Dates: start: 20091218, end: 20091220
  25. KCL CORRECTIVE [Concomitant]
     Route: 041
     Dates: start: 20091218, end: 20091221
  26. CALCICOL [Concomitant]
     Route: 065
     Dates: start: 20091218, end: 20091222
  27. BFLUID [Concomitant]
     Route: 042
     Dates: start: 20091218, end: 20091222
  28. PRECEDEX [Concomitant]
     Route: 042
     Dates: start: 20091220, end: 20091220
  29. ROPION [Concomitant]
     Route: 042
     Dates: start: 20091220, end: 20091220
  30. LASIX [Concomitant]
     Route: 048
     Dates: start: 20091220
  31. ALDACTONE [Concomitant]
     Route: 048
     Dates: start: 20091220, end: 20091231
  32. PERSANTINE [Concomitant]
     Route: 048
     Dates: start: 20091220, end: 20091231
  33. BLOSTAR M [Concomitant]
     Route: 048
     Dates: start: 20091220, end: 20091231
  34. PRIMPERAN [Concomitant]
     Route: 065
     Dates: start: 20091221, end: 20091221
  35. ARTIST [Concomitant]
     Route: 048
     Dates: start: 20091225, end: 20091231
  36. GOODMIN [Concomitant]
     Route: 048
     Dates: start: 20091226, end: 20091226
  37. LORFENAMIN [Concomitant]
     Route: 048
     Dates: start: 20091228, end: 20091228

REACTIONS (1)
  - INTERSTITIAL LUNG DISEASE [None]
